FAERS Safety Report 5281200-8 (Version None)
Quarter: 2007Q1

REPORT INFORMATION
  Report Type: 
  Country: None (occurrence: None)
  Receive Date: 20061220
  Receipt Date: 20051216
  Transmission Date: 20070707
  Serious: Yes (Other)
  Sender: FDA-Public Use
  Company Number: 2005147277

PATIENT
  Age: 72 Year
  Sex: Male

DRUGS (6)
  1. CARDURA [Suspect]
     Indication: HYPERTENSION
     Dosage: 1 MG (1 MG 1 IN 24 HR), ORAL
     Route: 048
     Dates: start: 20050101, end: 20051024
  2. FOLIC ACID [Suspect]
     Indication: ILL-DEFINED DISORDER
  3. PLAVIX [Concomitant]
  4. ALLOPURINOL [Concomitant]
  5. ASPIRIN [Concomitant]
  6. ADVICOR [Concomitant]

REACTIONS (5)
  - COUGH [None]
  - DECREASED APPETITE [None]
  - DYSGEUSIA [None]
  - FUNGAL INFECTION [None]
  - WEIGHT DECREASED [None]
